FAERS Safety Report 13608230 (Version 1)
Quarter: 2017Q2

REPORT INFORMATION
  Report Type: Spontaneous
  Country: AU (occurrence: AU)
  Receive Date: 20170602
  Receipt Date: 20170602
  Transmission Date: 20170830
  Serious: Yes (Other)
  Sender: FDA-Public Use
  Company Number: AU-HQ SPECIALTY-AU-2017INT000184

PATIENT
  Age: 51 Year
  Sex: Female

DRUGS (1)
  1. CISPLATIN. [Suspect]
     Active Substance: CISPLATIN
     Indication: PERITONEAL MESOTHELIOMA MALIGNANT
     Dosage: UNK

REACTIONS (1)
  - Gastric perforation [Recovered/Resolved]
